FAERS Safety Report 5283301-7 (Version None)
Quarter: 2007Q1

REPORT INFORMATION
  Report Type: 
  Country: None (occurrence: None)
  Receive Date: 20070328
  Receipt Date: 20070328
  Transmission Date: 20070707
  Serious: Yes (Life-Threatening)
  Sender: FDA-Public Use
  Company Number: None

PATIENT
  Sex: Male
  Weight: 74.3899 kg

DRUGS (1)
  1. ZYVOX [Suspect]
     Indication: STAPHYLOCOCCAL INFECTION
     Dosage: 600 MG  TWICE DAILY  BY MOUTH
     Route: 048
     Dates: start: 20070209, end: 20070228

REACTIONS (4)
  - AGEUSIA [None]
  - APHAGIA [None]
  - ASTHENIA [None]
  - DIARRHOEA [None]
